FAERS Safety Report 6417183-4 (Version None)
Quarter: 2009Q4

REPORT INFORMATION
  Report Type: 
  Country: None (occurrence: None)
  Receive Date: 20091028
  Receipt Date: 20091019
  Transmission Date: 20100525
  Serious: No
  Sender: FDA-Public Use
  Company Number: US-JNJFOC-20091006638

PATIENT
  Sex: Female
  Weight: 77.11 kg

DRUGS (6)
  1. DURAGESIC-100 [Suspect]
     Indication: FIBROMYALGIA
     Route: 062
     Dates: start: 20091018
  2. IMITREX [Concomitant]
     Indication: MIGRAINE
     Route: 065
  3. SOMA [Concomitant]
     Indication: MUSCLE RELAXANT THERAPY
     Route: 065
  4. PERCOCET [Concomitant]
     Indication: PAIN
     Dosage: 7.5
     Route: 065
  5. CYMBALTA [Concomitant]
     Indication: DEPRESSION
     Route: 065
  6. KLONOPIN [Concomitant]
     Indication: STRESS
     Route: 065

REACTIONS (7)
  - FEELING JITTERY [None]
  - INAPPROPRIATE SCHEDULE OF DRUG ADMINISTRATION [None]
  - MUSCLE SPASMS [None]
  - PRODUCT QUALITY ISSUE [None]
  - SCREAMING [None]
  - STRESS [None]
  - WITHDRAWAL SYNDROME [None]
